FAERS Safety Report 7650917-X (Version None)
Quarter: 2011Q3

REPORT INFORMATION
  Report Type: 
  Country: None (occurrence: None)
  Receive Date: 20110802
  Receipt Date: 20110520
  Transmission Date: 20111222
  Serious: No
  Sender: FDA-Public Use
  Company Number: US-AMGEN-USASP2011036626

PATIENT
  Sex: Female

DRUGS (1)
  1. PROCRIT [Suspect]
     Indication: RENAL FAILURE
     Dosage: 20000 IU, QWK
     Route: 058
     Dates: start: 20110501

REACTIONS (1)
  - DRUG DOSE OMISSION [None]
